APPROVED DRUG PRODUCT: LABETALOL HYDROCHLORIDE
Active Ingredient: LABETALOL HYDROCHLORIDE
Strength: 300MG
Dosage Form/Route: TABLET;ORAL
Application: A207743 | Product #003 | TE Code: AB
Applicant: ZYDUS PHARMACEUTICALS USA INC
Approved: Sep 19, 2017 | RLD: No | RS: No | Type: RX